FAERS Safety Report 9343274 (Version 1)
Quarter: 2013Q2

REPORT INFORMATION
  Report Type: Spontaneous
  Country: IT (occurrence: IT)
  Receive Date: 20130612
  Receipt Date: 20130612
  Transmission Date: 20140414
  Serious: Yes (Hospitalization)
  Sender: FDA-Public Use
  Company Number: IT-BRISTOL-MYERS SQUIBB COMPANY-19000454

PATIENT
  Age: 88 Year
  Sex: Male

DRUGS (5)
  1. COUMADIN TABS 5 MG [Suspect]
     Route: 048
     Dates: start: 20130101, end: 20130605
  2. DOXAZOSIN [Concomitant]
  3. LASIX [Concomitant]
     Dosage: TABS
  4. CLAVULIN [Concomitant]
     Dosage: 1 DF = 875/125 MG TAB
  5. DEPONIT [Concomitant]
     Dosage: 10MG/24H TRANSDERMAL PATCHES
     Route: 062

REACTIONS (2)
  - Haematoma [Recovering/Resolving]
  - Back injury [Recovering/Resolving]
